FAERS Safety Report 13410602 (Version 2)
Quarter: 2017Q4

REPORT INFORMATION
  Report Type: Spontaneous
  Country: US (occurrence: US)
  Receive Date: 20170406
  Receipt Date: 20171123
  Transmission Date: 20180320
  Serious: No
  Sender: FDA-Public Use
  Company Number: US-JNJFOC-20170300896

PATIENT
  Sex: Male

DRUGS (28)
  1. RISPERDAL [Suspect]
     Active Substance: RISPERIDONE
     Indication: SUBSTANCE ABUSE
     Route: 048
     Dates: start: 19990717, end: 19990725
  2. RISPERDAL [Suspect]
     Active Substance: RISPERIDONE
     Indication: CONDUCT DISORDER
     Route: 048
     Dates: start: 19990717, end: 19990725
  3. RISPERDAL [Suspect]
     Active Substance: RISPERIDONE
     Indication: SHARED PSYCHOTIC DISORDER
     Route: 048
     Dates: start: 19990717, end: 19990725
  4. RISPERDAL [Suspect]
     Active Substance: RISPERIDONE
     Indication: BIPOLAR DISORDER
     Route: 048
     Dates: start: 20011220
  5. RISPERDAL [Suspect]
     Active Substance: RISPERIDONE
     Indication: SUBSTANCE ABUSE
     Route: 048
     Dates: start: 20011220
  6. RISPERDAL [Suspect]
     Active Substance: RISPERIDONE
     Indication: CONDUCT DISORDER
     Route: 048
     Dates: start: 20010130, end: 20010202
  7. RISPERIDONE. [Suspect]
     Active Substance: RISPERIDONE
     Indication: BIPOLAR DISORDER
     Route: 048
     Dates: start: 20000706, end: 20000803
  8. RISPERDAL [Suspect]
     Active Substance: RISPERIDONE
     Indication: SUBSTANCE ABUSE
     Route: 048
     Dates: start: 20000706, end: 20000803
  9. RISPERDAL [Suspect]
     Active Substance: RISPERIDONE
     Indication: SHARED PSYCHOTIC DISORDER
     Route: 048
     Dates: start: 20011220
  10. RISPERDAL [Suspect]
     Active Substance: RISPERIDONE
     Indication: SHARED PSYCHOTIC DISORDER
     Route: 048
     Dates: start: 20010130, end: 20010202
  11. RISPERIDONE. [Suspect]
     Active Substance: RISPERIDONE
     Indication: SHARED PSYCHOTIC DISORDER
     Route: 048
     Dates: start: 20000706, end: 20000803
  12. RISPERDAL [Suspect]
     Active Substance: RISPERIDONE
     Indication: SUBSTANCE ABUSE
     Route: 048
     Dates: start: 20011130
  13. RISPERDAL [Suspect]
     Active Substance: RISPERIDONE
     Indication: CONDUCT DISORDER
     Route: 048
     Dates: start: 20011130
  14. RISPERDAL [Suspect]
     Active Substance: RISPERIDONE
     Indication: CONDUCT DISORDER
     Route: 048
     Dates: start: 20010328, end: 20010403
  15. RISPERDAL [Suspect]
     Active Substance: RISPERIDONE
     Indication: SHARED PSYCHOTIC DISORDER
     Route: 048
     Dates: start: 20011130
  16. RISPERDAL [Suspect]
     Active Substance: RISPERIDONE
     Indication: CONDUCT DISORDER
     Route: 048
     Dates: start: 20000706, end: 20000803
  17. RISPERDAL [Suspect]
     Active Substance: RISPERIDONE
     Indication: SHARED PSYCHOTIC DISORDER
     Route: 048
     Dates: start: 20000706, end: 20000803
  18. RISPERDAL [Suspect]
     Active Substance: RISPERIDONE
     Indication: SUBSTANCE ABUSE
     Route: 048
     Dates: start: 20010130, end: 20010202
  19. RISPERDAL [Suspect]
     Active Substance: RISPERIDONE
     Indication: BIPOLAR DISORDER
     Route: 048
     Dates: start: 20000706, end: 20000803
  20. RISPERDAL [Suspect]
     Active Substance: RISPERIDONE
     Indication: BIPOLAR DISORDER
     Route: 048
     Dates: start: 20011130
  21. RISPERDAL [Suspect]
     Active Substance: RISPERIDONE
     Indication: BIPOLAR DISORDER
     Route: 048
     Dates: start: 20010130, end: 20010202
  22. RISPERDAL [Suspect]
     Active Substance: RISPERIDONE
     Indication: SUBSTANCE ABUSE
     Route: 048
     Dates: start: 20010328, end: 20010403
  23. RISPERDAL [Suspect]
     Active Substance: RISPERIDONE
     Indication: CONDUCT DISORDER
     Route: 048
     Dates: start: 20011220
  24. RISPERDAL [Suspect]
     Active Substance: RISPERIDONE
     Indication: BIPOLAR DISORDER
     Route: 048
     Dates: start: 20010328, end: 20010403
  25. RISPERIDONE. [Suspect]
     Active Substance: RISPERIDONE
     Indication: CONDUCT DISORDER
     Route: 048
     Dates: start: 20000706, end: 20000803
  26. RISPERIDONE. [Suspect]
     Active Substance: RISPERIDONE
     Indication: SUBSTANCE ABUSE
     Route: 048
     Dates: start: 20000706, end: 20000803
  27. RISPERDAL [Suspect]
     Active Substance: RISPERIDONE
     Indication: SHARED PSYCHOTIC DISORDER
     Route: 048
     Dates: start: 20010328, end: 20010403
  28. RISPERDAL [Suspect]
     Active Substance: RISPERIDONE
     Indication: BIPOLAR DISORDER
     Route: 048
     Dates: start: 19990717, end: 19990725

REACTIONS (2)
  - Gynaecomastia [Unknown]
  - Emotional disorder [Unknown]
